FAERS Safety Report 4972045-4 (Version None)
Quarter: 2006Q2

REPORT INFORMATION
  Report Type: 
  Country: None (occurrence: None)
  Receive Date: 20060412
  Receipt Date: 20060412
  Transmission Date: 20061013
  Serious: Yes (Hospitalization)
  Sender: FDA-Public Use
  Company Number: None

PATIENT
  Sex: Female

DRUGS (2)
  1. DICYCLOMINE [Suspect]
     Indication: DRUG WITHDRAWAL SYNDROME
     Dosage: IT PRN
     Dates: start: 20060403, end: 20060407
  2. PAROXETINE   20MG [Suspect]
     Indication: DEPRESSION
     Dosage: 1 TAB
     Dates: start: 20060403, end: 20060407

REACTIONS (1)
  - DELIRIUM [None]
